FAERS Safety Report 16530956 (Version 1)
Quarter: 2019Q3

REPORT INFORMATION
  Report Type: Spontaneous
  Country: US (occurrence: US)
  Receive Date: 20190705
  Receipt Date: 20190705
  Transmission Date: 20191004
  Serious: No
  Sender: FDA-Public Use
  Company Number: US-ASTRAZENECA-2019SE84898

PATIENT
  Sex: Male
  Weight: 45.4 kg

DRUGS (7)
  1. PULMICORT FLEXHALER [Suspect]
     Active Substance: BUDESONIDE
     Indication: ASTHMA
     Route: 055
     Dates: start: 2006
  2. PULMICORT TURBUHALER [Concomitant]
     Active Substance: BUDESONIDE
     Route: 055
  3. INTAL [Concomitant]
     Active Substance: CROMOLYN SODIUM
     Route: 055
  4. ALBUTEROL LIQUID [Concomitant]
     Dosage: AS REQUIRED
     Route: 055
  5. BUDECORT [Concomitant]
     Active Substance: BUDESONIDE
  6. ALBUTEROL INHALER [Concomitant]
     Active Substance: ALBUTEROL
     Indication: DYSPNOEA
     Dosage: 90.0UG AS REQUIRED
     Route: 055
  7. PULMICORT FLEXHALER [Suspect]
     Active Substance: BUDESONIDE
     Indication: ASTHMA
     Dosage: 3 PUFFS TWICE A DAY
     Route: 055
     Dates: start: 2006

REACTIONS (8)
  - Off label use [Unknown]
  - Dyspnoea [Unknown]
  - Tympanic membrane perforation [Unknown]
  - Fall [Unknown]
  - Prostate infection [Unknown]
  - Limb injury [Unknown]
  - Drug hypersensitivity [Unknown]
  - Musculoskeletal disorder [Unknown]
